FAERS Safety Report 7363917-4 (Version None)
Quarter: 2011Q1

REPORT INFORMATION
  Report Type: 
  Country: None (occurrence: None)
  Receive Date: 20110321
  Receipt Date: 20110107
  Transmission Date: 20110831
  Serious: No
  Sender: FDA-Public Use
  Company Number: US-BAYER-2011-003181

PATIENT
  Sex: Female
  Weight: 77.098 kg

DRUGS (2)
  1. ALEVE (CAPLET) [Suspect]
     Indication: ARTHRALGIA
     Dosage: 2 DF, IRR, BOTTLE COUNT 40CT
     Route: 048
     Dates: start: 20100101
  2. ASPIRIN [Concomitant]

REACTIONS (1)
  - ARTHRALGIA [None]
